FAERS Safety Report 18294461 (Version 1)
Quarter: 2020Q3

REPORT INFORMATION
  Report Type: Spontaneous
  Country: US (occurrence: US)
  Receive Date: 20200922
  Receipt Date: 20200922
  Transmission Date: 20201103
  Serious: Yes (Hospitalization, Other)
  Sender: FDA-Public Use
  Company Number: None

PATIENT
  Age: 36 Year
  Sex: Female
  Weight: 69.75 kg

DRUGS (3)
  1. ZOLOFT [Concomitant]
     Active Substance: SERTRALINE HYDROCHLORIDE
  2. GARDEN OF LIFE MYKIND ORGANICS HAIR, SKIN + NAILS VEGAN TABLETS [Concomitant]
  3. METRONIDAZOLE. [Suspect]
     Active Substance: METRONIDAZOLE
     Indication: BACTERIAL INFECTION
     Dosage: ?          QUANTITY:1 TABLET(S);?
     Route: 048
     Dates: start: 20200713, end: 20200717

REACTIONS (41)
  - Tachycardia [None]
  - Dysstasia [None]
  - Neutrophil count increased [None]
  - Gastrointestinal disorder [None]
  - Fibrin D dimer increased [None]
  - Benign lymph node neoplasm [None]
  - Rash [None]
  - Pain in extremity [None]
  - Cor pulmonale [None]
  - Blood pressure diastolic increased [None]
  - Pulmonary mass [None]
  - Coeliac artery stenosis [None]
  - Nervous system disorder [None]
  - Diarrhoea [None]
  - Blood potassium decreased [None]
  - Blood urine present [None]
  - Coeliac artery compression syndrome [None]
  - Abnormal clotting factor [None]
  - Hypertension [None]
  - Dyspnoea [None]
  - Lymphocyte count decreased [None]
  - Swelling face [None]
  - Dyspepsia [None]
  - Adverse event [None]
  - Blood ketone body [None]
  - Asthenia [None]
  - Hypoaesthesia [None]
  - Paraesthesia [None]
  - Dizziness [None]
  - Blood glucose fluctuation [None]
  - Cardiac disorder [None]
  - Fatigue [None]
  - Cardiovascular disorder [None]
  - Tremor [None]
  - Palpitations [None]
  - Peripheral coldness [None]
  - Atelectasis [None]
  - Chest discomfort [None]
  - Presyncope [None]
  - Metabolic disorder [None]
  - Gastrointestinal inflammation [None]

NARRATIVE: CASE EVENT DATE: 20200717
